FAERS Safety Report 5153974-8 (Version None)
Quarter: 2006Q4

REPORT INFORMATION
  Report Type: 
  Country: None (occurrence: None)
  Receive Date: 20061120
  Receipt Date: 20061020
  Transmission Date: 20070319
  Serious: Yes (Hospitalization)
  Sender: FDA-Public Use
  Company Number: FI-RB-004285-06

PATIENT
  Age: 39 Year
  Sex: Male

DRUGS (10)
  1. SUBOXONE [Suspect]
     Indication: DRUG USE FOR UNKNOWN INDICATION
     Dosage: DOSAGE UNKNOWN
     Route: 065
     Dates: start: 20060724, end: 20060724
  2. SUBOXONE [Suspect]
     Route: 065
     Dates: start: 20060725, end: 20060906
  3. SUBOXONE [Suspect]
     Route: 065
     Dates: start: 20060916, end: 20060922
  4. SUBOXONE [Suspect]
     Route: 065
     Dates: start: 20060923, end: 20061016
  5. SUBOXONE [Suspect]
  6. SUBUTEX [Suspect]
     Indication: DRUG USE FOR UNKNOWN INDICATION
     Route: 065
     Dates: start: 20061017
  7. SUBUTEX [Suspect]
     Dosage: 2 - 4 MG DAILY
     Route: 048
  8. COMBIVIR [Concomitant]
     Indication: DRUG USE FOR UNKNOWN INDICATION
     Dosage: DOSAGE UNKNOWN
     Route: 048
     Dates: start: 20000101
  9. TELZIR [Concomitant]
     Indication: DRUG USE FOR UNKNOWN INDICATION
     Dosage: DOSAGE UNKNOWN
     Route: 048
     Dates: start: 20060913, end: 20060916
  10. NORVIR [Concomitant]
     Indication: DRUG USE FOR UNKNOWN INDICATION
     Route: 048
     Dates: start: 20000101

REACTIONS (5)
  - HYPERHIDROSIS [None]
  - HYPERSENSITIVITY [None]
  - PRURITUS [None]
  - PSORIASIS [None]
  - RASH ERYTHEMATOUS [None]
